FAERS Safety Report 8890642 (Version 5)
Quarter: 2013Q4

REPORT INFORMATION
  Report Type: Spontaneous
  Country: JP (occurrence: JP)
  Receive Date: 20121107
  Receipt Date: 20131101
  Transmission Date: 20140711
  Serious: Yes (Other)
  Sender: FDA-Public Use
  Company Number: PHHY2012JP097071

PATIENT
  Age: 38 Year
  Sex: Male

DRUGS (4)
  1. CLOZARIL [Suspect]
     Indication: SCHIZOPHRENIA
     Dosage: UNK
     Route: 048
  2. CLOZARIL [Suspect]
     Dosage: 600 MG, DAILY
     Route: 048
     Dates: start: 20120706, end: 20121012
  3. CLOZARIL [Suspect]
     Dosage: 500 MG, DAILY
     Route: 048
     Dates: start: 20121013, end: 20121016
  4. CLOZARIL [Suspect]
     Dosage: 200 MG, DAILY
     Route: 048
     Dates: start: 20121017, end: 20121020

REACTIONS (11)
  - Loss of consciousness [Unknown]
  - Altered state of consciousness [Not Recovered/Not Resolved]
  - Disorientation [Unknown]
  - Stupor [Unknown]
  - Fall [Unknown]
  - Electroencephalogram abnormal [Recovering/Resolving]
  - Blood creatine phosphokinase increased [Unknown]
  - Psychiatric symptom [Unknown]
  - Elevated mood [Unknown]
  - Abnormal behaviour [Unknown]
  - Pyrexia [Unknown]
